FAERS Safety Report 6292092-2 (Version None)
Quarter: 2009Q3

REPORT INFORMATION
  Report Type: 
  Country: None (occurrence: None)
  Receive Date: 20090731
  Receipt Date: 20070514
  Transmission Date: 20100115
  Serious: Yes (Other)
  Sender: FDA-Public Use
  Company Number: US-ASTRAZENECA-2006UW25685

PATIENT
  Age: 25 Year
  Sex: Female
  Weight: 122.5 kg

DRUGS (12)
  1. SEROQUEL [Suspect]
     Indication: BIPOLAR DISORDER
     Dosage: 25-100 MG
     Route: 048
     Dates: start: 20020101, end: 20051201
  2. SEROQUEL [Suspect]
     Indication: SLEEP DISORDER
     Dosage: 25-100 MG
     Route: 048
     Dates: start: 20020101, end: 20051201
  3. SEROQUEL [Suspect]
     Dosage: 25MG-100MG
     Route: 048
     Dates: start: 20030114
  4. SEROQUEL [Suspect]
     Dosage: 25MG-100MG
     Route: 048
     Dates: start: 20030114
  5. RISPERDAL [Concomitant]
  6. PAXIL CR [Concomitant]
     Dosage: 10-37.5 MG DAILY
     Route: 048
     Dates: start: 20010228
  7. NEURONTIN [Concomitant]
     Dosage: STRENGTH-600MG, 1200MG. DOSE-1200MG DAILY
     Route: 048
     Dates: start: 20030310
  8. LITHIUM CARBONATE [Concomitant]
     Indication: AFFECTIVE DISORDER
     Dosage: 300MG IN MORNING AND 600 MG AT NIGHT
     Dates: start: 20021113
  9. AMBIEN [Concomitant]
     Indication: INSOMNIA
     Dates: start: 20010220
  10. ALPRAZOLAM [Concomitant]
  11. LOTENSIN [Concomitant]
     Route: 048
     Dates: start: 20041004
  12. DEPO-PROVERA [Concomitant]
     Dates: start: 20000101

REACTIONS (3)
  - DIABETES MELLITUS [None]
  - DIABETIC NEPHROPATHY [None]
  - TYPE 2 DIABETES MELLITUS [None]
